FAERS Safety Report 6342427 (Version 4)
Quarter: 2012Q4

REPORT INFORMATION
  Report Type: 
  Country: JP (occurrence: JP)
  Receive Date: 20070626
  Receipt Date: 20121217
  Transmission Date: 20130627
  Serious: Yes (Death, Hospitalization)
  Sender: FDA-Public Use
  Company Number: JP-JNJFOC-20070604273

PATIENT
  Sex: Female
  Weight: 64 kg

DRUGS (12)
  1. REMICADE [Suspect]
     Indication: RHEUMATOID ARTHRITIS
     Route: 042
     Dates: start: 20060908
  2. REMICADE [Suspect]
     Indication: RHEUMATOID ARTHRITIS
     Route: 042
     Dates: start: 20060714
  3. REMICADE [Suspect]
     Indication: RHEUMATOID ARTHRITIS
     Route: 042
     Dates: start: 20060519
  4. REMICADE [Suspect]
     Indication: RHEUMATOID ARTHRITIS
     Route: 042
     Dates: start: 20060324
  5. REMICADE [Suspect]
     Indication: RHEUMATOID ARTHRITIS
     Route: 042
     Dates: start: 20060210
  6. REMICADE [Suspect]
     Indication: RHEUMATOID ARTHRITIS
     Route: 042
     Dates: start: 20060224
  7. METHOTREXATE [Suspect]
     Indication: RHEUMATOID ARTHRITIS
     Route: 065
     Dates: start: 20051214, end: 20060908
  8. PREDNISONE [Suspect]
     Indication: RHEUMATOID ARTHRITIS
     Route: 065
  9. PREDONINE [Concomitant]
     Route: 048
     Dates: start: 20050413
  10. NU-LOTAN [Concomitant]
     Indication: CARDIAC FAILURE CHRONIC
     Route: 048
     Dates: start: 20031015
  11. HERBESSER R [Concomitant]
     Indication: CARDIAC FAILURE CHRONIC
     Route: 048
     Dates: start: 20031015
  12. ANTIADRENAL PREPARATIONS [Concomitant]
     Indication: RHEUMATOID ARTHRITIS
     Route: 065

REACTIONS (4)
  - Respiratory failure [Unknown]
  - Interstitial lung disease [Fatal]
  - Pneumocystis jiroveci pneumonia [Fatal]
  - Condition aggravated [Fatal]
